FAERS Safety Report 16033219 (Version 3)
Quarter: 2019Q2

REPORT INFORMATION
  Report Type: Report from Study
  Country: None (occurrence: US)
  Receive Date: 20190305
  Receipt Date: 20190604
  Transmission Date: 20190711
  Serious: Yes (Hospitalization, Other)
  Sender: FDA-Public Use
  Company Number: US-ABBVIE-19K-163-2687939-00

PATIENT
  Age: 88 Year
  Sex: Male
  Weight: 67.5 kg

DRUGS (6)
  1. VENCLEXTA [Suspect]
     Active Substance: VENETOCLAX
     Dosage: 1 ON D1, 2 ON D2, 3 ON D3, 4 DAILY THEREAFTER
     Route: 048
     Dates: start: 20190221, end: 20190221
  2. VENCLEXTA [Suspect]
     Active Substance: VENETOCLAX
     Route: 048
     Dates: start: 20190223, end: 2019
  3. VENCLEXTA [Suspect]
     Active Substance: VENETOCLAX
     Indication: ACUTE MYELOID LEUKAEMIA
     Dosage: 1 ON D1, 2 ON D2, 3 ON D3, 4 DAILY THEREAFTER
     Route: 048
     Dates: start: 20190219, end: 20190219
  4. VENCLEXTA [Suspect]
     Active Substance: VENETOCLAX
     Dosage: 1 ON D1, 2 ON D2, 3 ON D3, 4 DAILY THEREAFTER
     Route: 048
     Dates: start: 20190220, end: 20190220
  5. VENCLEXTA [Suspect]
     Active Substance: VENETOCLAX
     Dosage: 1 ON D1, 2 ON D2, 3 ON D3, 4 DAILY THEREAFTER
     Route: 048
     Dates: start: 20190222, end: 20190222
  6. DECITABINE. [Concomitant]
     Active Substance: DECITABINE
     Indication: ACUTE MYELOID LEUKAEMIA

REACTIONS (4)
  - Haemoglobin decreased [Recovering/Resolving]
  - Tumour lysis syndrome [Recovered/Resolved]
  - White blood cell count decreased [Recovering/Resolving]
  - Neoplasm malignant [Unknown]

NARRATIVE: CASE EVENT DATE: 2019
